FAERS Safety Report 5614355-3 (Version None)
Quarter: 2008Q1

REPORT INFORMATION
  Report Type: 
  Country: None (occurrence: None)
  Receive Date: 20080205
  Receipt Date: 20080124
  Transmission Date: 20080703
  Serious: Yes (Other)
  Sender: FDA-Public Use
  Company Number: FR-PFIZER INC-2008008564

PATIENT
  Sex: Female

DRUGS (11)
  1. CHANTIX [Suspect]
     Dates: start: 20071022, end: 20071125
  2. KARDEGIC [Concomitant]
  3. ATENOLOL [Concomitant]
  4. SULFARLEM [Concomitant]
  5. NEXIUM [Concomitant]
  6. IKOREL [Concomitant]
  7. CITALOPRAM HYDROBROMIDE [Concomitant]
  8. NEURONTIN [Concomitant]
  9. SIMVASTATIN [Concomitant]
  10. BRONCHODUAL [Concomitant]
  11. SYMBICORT [Concomitant]

REACTIONS (7)
  - BRONCHITIS [None]
  - CHRONIC OBSTRUCTIVE PULMONARY DISEASE [None]
  - CONDITION AGGRAVATED [None]
  - COUGH [None]
  - FATIGUE [None]
  - INFECTION [None]
  - PYREXIA [None]
